FAERS Safety Report 22173284 (Version 4)
Quarter: 2024Q2

REPORT INFORMATION
  Report Type: Other
  Country: JP (occurrence: JP)
  Receive Date: 20230404
  Receipt Date: 20240418
  Transmission Date: 20240716
  Serious: Yes (Hospitalization, Other)
  Sender: FDA-Public Use
  Company Number: JP-Merck Healthcare KGaA-9393538

PATIENT
  Age: 40 Year
  Sex: Male
  Weight: 35 kg

DRUGS (1)
  1. METGLUCO [Suspect]
     Active Substance: METFORMIN HYDROCHLORIDE
     Indication: Product used for unknown indication
     Dosage: SINCE 4 MONTHS

REACTIONS (2)
  - MELAS syndrome [Recovered/Resolved]
  - Contraindicated product administered [Unknown]
